FAERS Safety Report 8590840-X (Version None)
Quarter: 2012Q3

REPORT INFORMATION
  Report Type: 
  Country: None (occurrence: None)
  Receive Date: 20120813
  Receipt Date: 20120806
  Transmission Date: 20120928
  Serious: Yes (Other)
  Sender: FDA-Public Use
  Company Number: JP-ROCHE-1083228

PATIENT
  Sex: Female

DRUGS (18)
  1. CELEBREX [Concomitant]
     Route: 048
     Dates: start: 20090611
  2. ACTEMRA [Suspect]
     Route: 041
     Dates: start: 20100217, end: 20100217
  3. METHOTREXATE SODIUM [Suspect]
     Indication: RHEUMATOID ARTHRITIS
     Route: 048
     Dates: start: 20080925, end: 20100416
  4. ISONIAZID [Concomitant]
     Indication: PROPHYLAXIS
     Route: 048
     Dates: start: 20081217
  5. ACTEMRA [Suspect]
     Route: 041
     Dates: start: 20100319, end: 20100319
  6. MECOBALAMIN [Concomitant]
     Route: 048
     Dates: start: 20081023
  7. FOLIC ACID [Concomitant]
     Indication: RHEUMATOID ARTHRITIS
     Route: 048
     Dates: start: 20080925, end: 20100416
  8. ACTEMRA [Suspect]
     Route: 041
     Dates: start: 20090709, end: 20090709
  9. ACTEMRA [Suspect]
     Route: 041
     Dates: start: 20090806, end: 20090910
  10. ISALON [Concomitant]
     Route: 048
     Dates: start: 20080707
  11. MOBIC [Concomitant]
     Indication: RHEUMATOID ARTHRITIS
     Route: 048
     Dates: start: 20080707
  12. ACTEMRA [Suspect]
     Indication: RHEUMATOID ARTHRITIS
     Route: 041
     Dates: start: 20090108, end: 20090212
  13. FOSAMAX [Concomitant]
     Indication: OSTEOPOROSIS
     Route: 048
     Dates: start: 20090114
  14. ACTEMRA [Suspect]
     Route: 041
     Dates: start: 20090212, end: 20090212
  15. ACTEMRA [Suspect]
     Route: 041
     Dates: start: 20090312, end: 20090507
  16. ACTEMRA [Suspect]
     Route: 041
     Dates: start: 20091009, end: 20100120
  17. PREDNISOLONE [Concomitant]
     Indication: RHEUMATOID ARTHRITIS
     Route: 048
     Dates: start: 20080707, end: 20100101
  18. ACTEMRA [Suspect]
     Route: 041
     Dates: start: 20090611, end: 20090611

REACTIONS (1)
  - CELL MARKER INCREASED [None]
